FAERS Safety Report 4723303-X (Version None)
Quarter: 2005Q3

REPORT INFORMATION
  Report Type: 
  Country: None (occurrence: None)
  Receive Date: 20050725
  Receipt Date: 20050208
  Transmission Date: 20060218
  Serious: No
  Sender: FDA-Public Use
  Company Number: US-BRISTOL-MYERS SQUIBB COMPANY-12853388

PATIENT
  Age: 73 Year
  Sex: Female
  Weight: 136 kg

DRUGS (6)
  1. DOVONEX [Suspect]
     Indication: PSORIASIS
     Route: 061
     Dates: start: 20050113, end: 20050207
  2. ZOCOR [Concomitant]
     Dosage: TAKEN ^FOR A FEW YEARS^
  3. BENICAR [Concomitant]
     Dosage: TAKEN ^FOR A FEW YEARS^
  4. EFFEXOR [Concomitant]
     Dosage: TAKEN ^FOR A FEW YEARS^
  5. PREDNISONE [Concomitant]
     Dosage: TAKEN ^FOR A FEW YEARS^
  6. VICODIN [Concomitant]

REACTIONS (4)
  - ERYTHEMA [None]
  - SKIN BURNING SENSATION [None]
  - SKIN EXFOLIATION [None]
  - SKIN WARM [None]
